FAERS Safety Report 25916179 (Version 1)
Quarter: 2025Q4

REPORT INFORMATION
  Report Type: Spontaneous
  Country: GB (occurrence: GB)
  Receive Date: 20251014
  Receipt Date: 20251014
  Transmission Date: 20260118
  Serious: Yes (Other)
  Sender: ACCORD
  Company Number: None

PATIENT
  Age: 67 Year
  Sex: Male
  Weight: 98 kg

DRUGS (11)
  1. ATORVASTATIN [Suspect]
     Active Substance: ATORVASTATIN
     Indication: Product used for unknown indication
     Dosage: STRENGTH: 20 MG, ONE TO BE TAKEN AT NIGHT TO LOWER CHOLESTEROL
     Dates: start: 20250624
  2. SPIRIVA [Concomitant]
     Active Substance: TIOTROPIUM BROMIDE MONOHYDRATE
     Indication: Ill-defined disorder
     Dosage: TAKE TWO PUFFS ONCE DAILY (REPLACE INHALER DEVI
     Dates: start: 20250721
  3. COCODAMOL [Concomitant]
     Active Substance: ACETAMINOPHEN\CODEINE PHOSPHATE
     Indication: Ill-defined disorder
     Dosage: ONE TO BE TAKEN FOUR TIMES A DAY WHEN REQUIRED
     Dates: start: 20250530
  4. DOXAZOSIN [Concomitant]
     Active Substance: DOXAZOSIN MESYLATE
     Indication: Ill-defined disorder
     Dosage: TAKE ONE DAILY, INCREASING TO TWO TABLETS DAILY
     Dates: start: 20250530
  5. EUMOVATE [Concomitant]
     Active Substance: CLOBETASONE BUTYRATE
     Indication: Ill-defined disorder
     Dosage: APPLY 1-2 TIMES/DAY ON YOUR FACE, NECK AND FLEX...
     Dates: start: 20250530
  6. INDAPAMIDE [Concomitant]
     Active Substance: INDAPAMIDE
     Indication: Ill-defined disorder
     Dosage: ONE TABLET EACH MORNING, TO REDUCE BLOOD PRESSURE
     Dates: start: 20250530
  7. MOMETASONE [Concomitant]
     Active Substance: MOMETASONE
     Indication: Ill-defined disorder
     Dosage: APPLY 1-2 TIMES/DAY ON YOUR TRUNK
     Dates: start: 20250530
  8. MONTELUKAST [Concomitant]
     Active Substance: MONTELUKAST
     Indication: Ill-defined disorder
     Dosage: ONE TABLET AT NIGHT TO PREVENT ASTHMA,
     Dates: start: 20250530
  9. OMEPRAZOLE [Concomitant]
     Active Substance: OMEPRAZOLE
     Indication: Ill-defined disorder
     Dosage: ONE TO BE TAKEN EACH DAY
     Dates: start: 20250530
  10. RAMIPRIL [Concomitant]
     Active Substance: RAMIPRIL
     Indication: Ill-defined disorder
     Dosage: ONE CAPSULE ONCE DAILY
     Dates: start: 20250530
  11. SYMBICORT [Concomitant]
     Active Substance: BUDESONIDE\FORMOTEROL FUMARATE DIHYDRATE
     Indication: Ill-defined disorder
     Dosage: 1 PUFF BD PRN
     Dates: start: 20250530

REACTIONS (4)
  - Myalgia [Recovered/Resolved]
  - Condition aggravated [Unknown]
  - Arthralgia [Recovered/Resolved]
  - Asthma [Recovering/Resolving]
